FAERS Safety Report 24116129 (Version 1)
Quarter: 2024Q3

REPORT INFORMATION
  Report Type: Spontaneous
  Country: US (occurrence: US)
  Receive Date: 20240722
  Receipt Date: 20240722
  Transmission Date: 20241016
  Serious: Yes (Other)
  Sender: AUROBINDO
  Company Number: US-AUROBINDO-AUR-APL-2024-035296

PATIENT
  Age: 63 Year
  Sex: Male

DRUGS (2)
  1. PEMETREXED [Suspect]
     Active Substance: PEMETREXED
     Indication: Rhabdoid tumour
     Dosage: UNK UNK, CYCLICAL (CHEMOTHERAPY)
     Route: 065
  2. CISPLATIN [Suspect]
     Active Substance: CISPLATIN
     Indication: Rhabdoid tumour
     Dosage: UNK, CYCLICAL (CHEMOTHERAPY)
     Route: 065

REACTIONS (1)
  - Drug ineffective [Unknown]
